FAERS Safety Report 5749995-4 (Version None)
Quarter: 2008Q2

REPORT INFORMATION
  Report Type: 
  Country: None (occurrence: None)
  Receive Date: 20080527
  Receipt Date: 20080513
  Transmission Date: 20081010
  Serious: Yes (Life-Threatening, Hospitalization)
  Sender: FDA-Public Use
  Company Number: JP-ROCHE-559275

PATIENT
  Sex: Male
  Weight: 64 kg

DRUGS (4)
  1. XELODA [Suspect]
     Indication: RECTAL CANCER METASTATIC
     Dosage: DRUG NAME: XELODA 300
     Route: 048
     Dates: start: 20080321, end: 20080404
  2. AMLODIN [Concomitant]
     Route: 048
     Dates: start: 20000401
  3. BLOPRESS [Concomitant]
     Route: 048
  4. PRAVASTATIN [Concomitant]
     Dosage: DRUG NAME: MEVAN
     Route: 048

REACTIONS (2)
  - DIARRHOEA [None]
  - INTERSTITIAL LUNG DISEASE [None]
